FAERS Safety Report 24589303 (Version 1)
Quarter: 2024Q4

REPORT INFORMATION
  Report Type: Spontaneous
  Country: US (occurrence: None)
  Receive Date: 20241107
  Receipt Date: 20241107
  Transmission Date: 20250115
  Serious: Yes (Hospitalization)
  Sender: Public
  Company Number: None

PATIENT
  Age: 80 Year
  Sex: Female

DRUGS (11)
  1. NUCALA [Suspect]
     Active Substance: MEPOLIZUMAB
     Indication: Asthma
     Dosage: FREQUENCY : MONTHLY;?
     Route: 058
  2. LEVOTHYROXINE [Concomitant]
     Active Substance: LEVOTHYROXINE
  3. PANTOPRAZOLE [Concomitant]
  4. SYMBICORT [Concomitant]
     Active Substance: BUDESONIDE\FORMOTEROL FUMARATE DIHYDRATE
  5. MONTELUKAST [Concomitant]
     Active Substance: MONTELUKAST
  6. Nitrofuratoin Mono/mac [Concomitant]
  7. CEFUROXIME [Concomitant]
  8. FOSFOMYCIN [Concomitant]
  9. NYSTATIN [Concomitant]
  10. FAMOTIDINE [Concomitant]
  11. ATORVASTATIN [Concomitant]

REACTIONS (1)
  - Urinary tract infection [None]
